FAERS Safety Report 6430712-X (Version None)
Quarter: 2009Q4

REPORT INFORMATION
  Report Type: 
  Country: None (occurrence: None)
  Receive Date: 20091106
  Receipt Date: 20091028
  Transmission Date: 20100525
  Serious: Yes (Hospitalization)
  Sender: FDA-Public Use
  Company Number: JP-B.I. PHARMACEUTICALS,INC./RIDGEFIELD-2009-BP-05032NB

PATIENT
  Sex: Male
  Weight: 50.2 kg

DRUGS (10)
  1. PRAMIPEXOLE [Suspect]
     Indication: PARKINSON'S DISEASE
     Dosage: 3.75 MG
     Route: 048
     Dates: start: 20080725, end: 20090310
  2. DOPACOL [Suspect]
     Indication: PARKINSON'S DISEASE
     Dosage: 300 MG
     Route: 048
     Dates: start: 20080502, end: 20090312
  3. NAUZELIN [Suspect]
     Indication: NAUSEA
     Dosage: 30 MG
     Route: 048
     Dates: start: 20080522, end: 20090312
  4. TAMSULOSIN HCL [Suspect]
     Indication: BENIGN PROSTATIC HYPERPLASIA
     Dosage: 0.2 MG
     Route: 048
     Dates: start: 20071005, end: 20090128
  5. DIOVAN [Suspect]
     Indication: HYPERTENSION
     Dosage: 40 MG
     Route: 048
     Dates: start: 20080502
  6. MADOPAR [Suspect]
     Indication: PARKINSON'S DISEASE
     Dosage: 300 MG
     Route: 048
     Dates: start: 20090313
  7. SELEGILINE HCL [Suspect]
     Indication: PARKINSON'S DISEASE
     Dosage: 5 MG
     Route: 048
     Dates: start: 20090313
  8. KETOPROFEN [Suspect]
     Indication: PERIARTHRITIS
     Dosage: 40 MG
     Route: 048
     Dates: start: 20080619
  9. MUCOSTA [Concomitant]
     Indication: GASTRITIS PROPHYLAXIS
     Dosage: 300 MG
     Route: 048
     Dates: start: 20080619
  10. LOXONIN [Concomitant]
     Indication: PERIARTHRITIS
     Dosage: 40 MG
     Route: 048
     Dates: start: 20080619, end: 20090312

REACTIONS (1)
  - CHRONIC INFLAMMATORY DEMYELINATING POLYRADICULONEUROPATHY [None]
